FAERS Safety Report 24873343 (Version 2)
Quarter: 2025Q1

REPORT INFORMATION
  Report Type: Spontaneous
  Country: US (occurrence: US)
  Receive Date: 20250122
  Receipt Date: 20250222
  Transmission Date: 20250409
  Serious: No
  Sender: SANOFI AVENTIS
  Company Number: US-SA-2024SA264970

PATIENT
  Age: 17 Year
  Sex: Female

DRUGS (10)
  1. DUPIXENT [Suspect]
     Active Substance: DUPILUMAB
     Indication: Asthma
     Dosage: 300 MG, QOW
     Route: 058
     Dates: start: 20240525
  2. VITAMIN D3 [Concomitant]
     Active Substance: CHOLECALCIFEROL
  3. VITAMIN C [Concomitant]
     Active Substance: ASCORBIC ACID
  4. WIXELA INHUB [Concomitant]
     Active Substance: FLUTICASONE PROPIONATE\SALMETEROL XINAFOATE
     Dosage: INHALE 1 PUFF BY INHALATION ROUTE 2 TIMES EVERY DAY APPROXIMATELY 12 HOURS APART AT THE SAME TIMES E
     Route: 055
  5. ZYRTEC [Concomitant]
     Active Substance: CETIRIZINE HYDROCHLORIDE
     Indication: Seasonal allergy
     Route: 048
  6. AZELASTINE [Concomitant]
     Active Substance: AZELASTINE
     Indication: Seasonal allergy
     Dosage: SPRAY 2 SPRAY BY INTRANASAL ROUTE 2 TIMES EVERY DAY IN EACH NOSTRIL
     Route: 045
  7. ALBUTEROL SULFATE [Concomitant]
     Active Substance: ALBUTEROL SULFATE
     Indication: Asthma
     Route: 055
  8. EPINEPHRINE [Concomitant]
     Active Substance: EPINEPHRINE
     Route: 030
  9. ACCOLATE [Concomitant]
     Active Substance: ZAFIRLUKAST
     Dosage: TAKE 1 TABLET BY ORAL ROUTE 2 TIMES EVERY DAY ON AN EMPTY STOMACH
     Route: 048
  10. NASACORT [Concomitant]
     Active Substance: TRIAMCINOLONE ACETONIDE
     Indication: Seasonal allergy
     Dosage: 1 SPRAY TWICE DAILY IN EACH NOSTRIL
     Route: 045

REACTIONS (2)
  - Pharyngitis streptococcal [Unknown]
  - Cough [Recovered/Resolved]

NARRATIVE: CASE EVENT DATE: 20241001
